FAERS Safety Report 10435973 (Version 1)
Quarter: 2014Q3

REPORT INFORMATION
  Report Type: Spontaneous
  Country: US (occurrence: None)
  Receive Date: 20140904
  Receipt Date: 20140904
  Transmission Date: 20150326
  Serious: Yes (Other)
  Sender: FDA-Public Use
  Company Number: 2010S1004547

PATIENT
  Age: 64 Year
  Sex: Male

DRUGS (8)
  1. GLIMEPIRIDE. [Concomitant]
     Active Substance: GLIMEPIRIDE
  2. SYNTHYROID (LEVOTHYROXINE SODIUM) [Concomitant]
  3. PHOSPHO-SODA [Suspect]
     Active Substance: SODIUM PHOSPHATE, DIBASIC\SODIUM PHOSPHATE, MONOBASIC
     Indication: COLONOSCOPY
     Route: 048
  4. ADVIL (MEFENAMIC ACID) [Concomitant]
     Active Substance: MEFENAMIC ACID
  5. CRESTOR [Concomitant]
     Active Substance: ROSUVASTATIN CALCIUM
  6. METFORMIN [Concomitant]
     Active Substance: METFORMIN HYDROCHLORIDE
  7. TRICOR [Concomitant]
     Active Substance: FENOFIBRATE
  8. LOTREL (BENAZEPRIL HYDROCHLORIDE, AMLODIPINE BESILATE) [Concomitant]

REACTIONS (10)
  - Anaemia [None]
  - Renal failure [None]
  - Hypoaesthesia [None]
  - Pain in extremity [None]
  - Renal tubular necrosis [None]
  - Injury [None]
  - Muscular weakness [None]
  - Renal failure chronic [None]
  - Back pain [None]
  - Blood parathyroid hormone increased [None]

NARRATIVE: CASE EVENT DATE: 2006
